FAERS Safety Report 12991705 (Version 1)
Quarter: 2016Q4

REPORT INFORMATION
  Report Type: Report from Study
  Country: DE (occurrence: DE)
  Receive Date: 20161201
  Receipt Date: 20161201
  Transmission Date: 20170207
  Serious: Yes (Hospitalization)
  Sender: FDA-Public Use
  Company Number: DE-SA-2015SA069251

PATIENT
  Age: 40 Year
  Sex: Female
  Weight: 60 kg

DRUGS (4)
  1. LEMTRADA [Suspect]
     Active Substance: ALEMTUZUMAB
     Indication: MULTIPLE SCLEROSIS
     Route: 041
     Dates: start: 20150223, end: 20150227
  2. SATIVEX [Concomitant]
     Active Substance: NABIXIMOLS
     Indication: MULTIPLE SCLEROSIS
     Dosage: SPRAY IF NEEDED; ORAL SPRAY
  3. LYRICA [Concomitant]
     Active Substance: PREGABALIN
     Indication: MULTIPLE SCLEROSIS
     Dosage: 75MG 2X1
     Route: 048
  4. FAMPYRA [Concomitant]
     Active Substance: DALFAMPRIDINE
     Indication: MULTIPLE SCLEROSIS
     Dosage: 10MG 2X1
     Route: 048

REACTIONS (2)
  - Alopecia [Unknown]
  - Multiple sclerosis relapse [Recovering/Resolving]

NARRATIVE: CASE EVENT DATE: 20150504
